FAERS Safety Report 9630660 (Version 3)
Quarter: 2013Q4

REPORT INFORMATION
  Report Type: Spontaneous
  Country: GB (occurrence: None)
  Receive Date: 20131011
  Receipt Date: 20131226
  Transmission Date: 20140711
  Serious: Yes (Life-Threatening, Hospitalization)
  Sender: FDA-Public Use
  Company Number: 1941731

PATIENT
  Age: 80 Year
  Sex: Female

DRUGS (14)
  1. (VINCRISTINE SULFATE) [Suspect]
     Indication: PRODUCT USED FOR UNKNOWN INDICATION
     Dates: start: 20130726, end: 20130906
  2. DOXORUBICIN HYDROCHLORIDE [Suspect]
     Indication: PRODUCT USED FOR UNKNOWN INDICATION
     Dates: start: 20130726, end: 20130906
  3. DOMPERIDONE [Suspect]
     Indication: PRODUCT USED FOR UNKNOWN INDICATION
     Route: 048
     Dates: start: 20130726, end: 20130918
  4. BORTEZOMIB [Suspect]
     Indication: PRODUCT USED FOR UNKNOWN INDICATION
     Dates: start: 20130826, end: 20131014
  5. PREDNISOLONE [Suspect]
     Indication: PRODUCT USED FOR UNKNOWN INDICATION
     Dates: start: 20130726, end: 20131001
  6. RITUXIMAB [Suspect]
     Indication: PRODUCT USED FOR UNKNOWN INDICATION
     Dates: start: 20130726, end: 20130927
  7. CYCLOPHOSPHAMIDE [Suspect]
     Indication: PRODUCT USED FOR UNKNOWN INDICATION
     Dates: start: 20130726, end: 20130927
  8. LEVOTHYROXINE [Concomitant]
  9. FUROSEMIDE [Concomitant]
  10. CYCLIZINE [Concomitant]
  11. BISOPROLOL [Concomitant]
  12. AMIODARONE [Concomitant]
  13. DALTEPARIN SODIUM [Concomitant]
  14. ALLOPURINOL [Concomitant]

REACTIONS (11)
  - Sepsis [None]
  - Neutropenia [None]
  - Dehydration [None]
  - Syncope [None]
  - Hypotension [None]
  - Nausea [None]
  - Vomiting [None]
  - Oropharyngeal pain [None]
  - Diarrhoea [None]
  - Hypothermia [None]
  - White blood cell count decreased [None]
